FAERS Safety Report 6287257-X (Version None)
Quarter: 2009Q3

REPORT INFORMATION
  Report Type: 
  Country: None (occurrence: None)
  Receive Date: 20090728
  Receipt Date: 20090720
  Transmission Date: 20100115
  Serious: Yes (Other)
  Sender: FDA-Public Use
  Company Number: PHHY2009DE30013

PATIENT
  Age: 55 Year
  Sex: Female

DRUGS (7)
  1. CYCLOSPORINE [Suspect]
     Indication: RENAL TRANSPLANT
     Dosage: 200 MG/DAY
     Dates: start: 20030101
  2. CYCLOSPORINE [Suspect]
     Dosage: 50 MG/DAY
  3. PREDNISOLONE [Suspect]
     Indication: RENAL TRANSPLANT
     Dosage: UNK
     Dates: start: 20030101
  4. SIROLIMUS [Suspect]
     Indication: RENAL TRANSPLANT
     Dosage: UNK
     Dates: start: 20030101
  5. SIROLIMUS [Suspect]
     Indication: IMMUNOSUPPRESSION
  6. MYCOPHENOLATE MOFETIL [Suspect]
     Indication: RENAL TRANSPLANT
     Dosage: UNK
     Dates: start: 20030101
  7. MYCOPHENOLATE MOFETIL [Suspect]
     Indication: IMMUNOSUPPRESSION

REACTIONS (4)
  - HAEMOSIDEROSIS [None]
  - HEPATIC STEATOSIS [None]
  - LIVER DISORDER [None]
  - NODULE [None]
